FAERS Safety Report 9957946 (Version 2)
Quarter: 2014Q1

REPORT INFORMATION
  Report Type: Report from Study
  Country: US (occurrence: US)
  Receive Date: 20140304
  Receipt Date: 20140304
  Transmission Date: 20141002
  Serious: No
  Sender: FDA-Public Use
  Company Number: US-ABBVIE-13P-163-1061205-00

PATIENT
  Age: 58 Year
  Sex: Female

DRUGS (13)
  1. HUMIRA [Suspect]
     Indication: CROHN^S DISEASE
     Route: 050
     Dates: start: 201301, end: 201301
  2. HUMIRA [Suspect]
     Indication: RHEUMATOID ARTHRITIS
     Dates: start: 201302, end: 201302
  3. HUMIRA [Suspect]
     Dates: start: 201302
  4. VITAMIN B [Concomitant]
     Indication: PRODUCT USED FOR UNKNOWN INDICATION
     Route: 050
  5. RECLAST [Concomitant]
     Indication: OSTEOPOROSIS
  6. KLONOPIN [Concomitant]
     Indication: SLEEP DISORDER
     Dosage: 1MG AT NIGHT
  7. ZANTAC [Concomitant]
     Indication: OESOPHAGEAL SPASM
  8. ZANTAC [Concomitant]
     Indication: GASTROOESOPHAGEAL REFLUX DISEASE
  9. PRILOSEC [Concomitant]
     Indication: OESOPHAGEAL DISORDER
  10. PRILOSEC [Concomitant]
     Indication: GASTROOESOPHAGEAL REFLUX DISEASE
  11. ADDERALL [Concomitant]
     Indication: ATTENTION DEFICIT/HYPERACTIVITY DISORDER
  12. FENTANYL [Concomitant]
     Indication: PAIN
     Dosage: CHANGE EVERY 2-3 DAYS
  13. DONNATAL [Concomitant]
     Indication: GASTROINTESTINAL PAIN

REACTIONS (5)
  - Injection site pain [Recovering/Resolving]
  - Injection site pain [Not Recovered/Not Resolved]
  - Urticaria [Recovering/Resolving]
  - Drug effect decreased [Recovering/Resolving]
  - Cough [Unknown]
